FAERS Safety Report 9803307 (Version 1)
Quarter: 2014Q1

REPORT INFORMATION
  Report Type: Spontaneous
  Country: US (occurrence: US)
  Receive Date: 20140108
  Receipt Date: 20140108
  Transmission Date: 20141002
  Serious: No
  Sender: FDA-Public Use
  Company Number: US-TEVA-454976USA

PATIENT
  Age: 4 Month
  Sex: 0

DRUGS (1)
  1. PLAN B ONE-STEP [Suspect]
     Route: 063

REACTIONS (3)
  - Irritability [Recovered/Resolved]
  - Anger [Recovered/Resolved]
  - Exposure during breast feeding [Unknown]
